FAERS Safety Report 4565338-6 (Version None)
Quarter: 2005Q1

REPORT INFORMATION
  Report Type: 
  Country: None (occurrence: None)
  Receive Date: 20050126
  Receipt Date: 20050107
  Transmission Date: 20050727
  Serious: Yes (Life-Threatening)
  Sender: FDA-Public Use
  Company Number: GBS041216179

PATIENT
  Age: 20 Year
  Sex: Male

DRUGS (1)
  1. FLUOXETINE [Suspect]
     Indication: DEPRESSED MOOD
     Dosage: 20 MG DAY
     Route: 048
     Dates: start: 20040909

REACTIONS (4)
  - ALCOHOL POISONING [None]
  - AMNESIA [None]
  - LEGAL PROBLEM [None]
  - LOSS OF CONSCIOUSNESS [None]
